FAERS Safety Report 15797888 (Version 1)
Quarter: 2019Q1

REPORT INFORMATION
  Report Type: Spontaneous
  Country: US (occurrence: US)
  Receive Date: 20190108
  Receipt Date: 20190108
  Transmission Date: 20190417
  Serious: No
  Sender: FDA-Public Use
  Company Number: US-MYLANLABS-2018M1097036

PATIENT

DRUGS (1)
  1. FENTANYL TRANSDERMAL SYSTEM [Suspect]
     Active Substance: FENTANYL
     Indication: BONE PAIN
     Dosage: UNK UNK, Q3D
     Route: 062

REACTIONS (2)
  - Drug effect decreased [Not Recovered/Not Resolved]
  - Product adhesion issue [Unknown]
